FAERS Safety Report 4843855-9 (Version None)
Quarter: 2005Q4

REPORT INFORMATION
  Report Type: 
  Country: None (occurrence: None)
  Receive Date: 20051130
  Receipt Date: 20051130
  Transmission Date: 20060501
  Serious: No
  Sender: FDA-Public Use
  Company Number: None

PATIENT
  Age: 26 Year
  Sex: Female

DRUGS (2)
  1. REYATAZ [Suspect]
     Indication: PROPHYLAXIS
     Dosage: OTIC; 300.0 MILLIGRAM
     Dates: start: 20051006, end: 20051012
  2. NORVIR [Suspect]
     Indication: PROPHYLAXIS
     Dosage: ORAL; 100.0 MILLIGRAM
     Route: 048
     Dates: start: 20051006, end: 20051012

REACTIONS (3)
  - BILIRUBIN CONJUGATED INCREASED [None]
  - BLOOD BILIRUBIN INCREASED [None]
  - SCLERAL DISCOLOURATION [None]
